FAERS Safety Report 17562764 (Version 1)
Quarter: 2020Q1

REPORT INFORMATION
  Report Type: Spontaneous
  Country: US (occurrence: US)
  Receive Date: 20200319
  Receipt Date: 20200319
  Transmission Date: 20200409
  Serious: No
  Sender: FDA-Public Use
  Company Number: US-PFIZER INC-2019221507

PATIENT
  Age: 72 Year
  Sex: Male

DRUGS (5)
  1. BOSULIF [Suspect]
     Active Substance: BOSUTINIB MONOHYDRATE
     Dosage: 100 MG, 1X/DAY (SHOULD BE TAKEN WITH FOOD)
     Route: 048
  2. BOSULIF [Suspect]
     Active Substance: BOSUTINIB MONOHYDRATE
     Indication: CHRONIC MYELOID LEUKAEMIA
     Dosage: 200 MG, 1X/DAY
     Route: 048
  3. BOSULIF [Suspect]
     Active Substance: BOSUTINIB MONOHYDRATE
     Dosage: 300 MG, DAILY
     Dates: start: 201911
  4. BOSULIF [Suspect]
     Active Substance: BOSUTINIB MONOHYDRATE
     Dosage: 200 MG, DAILY
  5. BOSULIF [Suspect]
     Active Substance: BOSUTINIB MONOHYDRATE
     Dosage: 300 MG, DAILY
     Dates: start: 20190225, end: 2019

REACTIONS (7)
  - Decreased appetite [Recovering/Resolving]
  - Weight decreased [Unknown]
  - Rash [Unknown]
  - Asthenia [Unknown]
  - Fatigue [Unknown]
  - Scab [Not Recovered/Not Resolved]
  - Dyspnoea [Unknown]

NARRATIVE: CASE EVENT DATE: 2019
